FAERS Safety Report 5203832-5 (Version None)
Quarter: 2007Q1

REPORT INFORMATION
  Report Type: 
  Country: None (occurrence: None)
  Receive Date: 20070108
  Receipt Date: 20070108
  Transmission Date: 20070707
  Serious: Yes (Hospitalization)
  Sender: FDA-Public Use
  Company Number: None

PATIENT
  Age: 76 Year
  Sex: Male
  Weight: 89.3586 kg

DRUGS (1)
  1. SOTALOL HCL [Suspect]
     Indication: CORONARY ARTERY DISEASE
     Dosage: 120 MG TID PO
     Route: 048
     Dates: start: 20020306, end: 20060105

REACTIONS (7)
  - ATRIAL FLUTTER [None]
  - HYPOKALAEMIA [None]
  - LOSS OF CONSCIOUSNESS [None]
  - SYNCOPE [None]
  - TORSADE DE POINTES [None]
  - VENTRICULAR FIBRILLATION [None]
  - VENTRICULAR TACHYCARDIA [None]
